FAERS Safety Report 7984767-1 (Version None)
Quarter: 2011Q4

REPORT INFORMATION
  Report Type: 
  Country: None (occurrence: None)
  Receive Date: 20111216
  Receipt Date: 20110906
  Transmission Date: 20120403
  Serious: No
  Sender: FDA-Public Use
  Company Number: US-ALLERGAN-1111839US

PATIENT
  Age: 66 Year
  Sex: Female

DRUGS (2)
  1. REFRESH PLUS [Concomitant]
  2. LATISSE [Suspect]
     Indication: GROWTH OF EYELASHES
     Dosage: UNK

REACTIONS (1)
  - CATARACT [None]
